FAERS Safety Report 8518313-0 (Version None)
Quarter: 2012Q3

REPORT INFORMATION
  Report Type: 
  Country: None (occurrence: None)
  Receive Date: 20120718
  Receipt Date: 20120131
  Transmission Date: 20120928
  Serious: No
  Sender: FDA-Public Use
  Company Number: US-BRISTOL-MYERS SQUIBB COMPANY-16362576

PATIENT
  Age: 67 Year
  Sex: Female

DRUGS (4)
  1. LANTUS [Suspect]
     Indication: TYPE 2 DIABETES MELLITUS
     Dosage: 35 UNITS 100 IU
     Route: 058
     Dates: start: 20110512
  2. JANUVIA [Concomitant]
     Dates: end: 20110101
  3. METFORMIN HYDROCHLORIDE [Concomitant]
     Dates: end: 20110101
  4. COUMADIN [Suspect]
     Indication: THROMBOSIS
     Dates: start: 20110512

REACTIONS (2)
  - INTERNATIONAL NORMALISED RATIO DECREASED [None]
  - DYSPNOEA [None]
